FAERS Safety Report 7157758-0 (Version None)
Quarter: 2010Q4

REPORT INFORMATION
  Report Type: 
  Country: None (occurrence: None)
  Receive Date: 20101214
  Receipt Date: 20100204
  Transmission Date: 20110411
  Serious: No
  Sender: FDA-Public Use
  Company Number: US-ASTRAZENECA-2010SE05185

PATIENT
  Age: 45 Year
  Sex: Male

DRUGS (3)
  1. CRESTOR [Suspect]
     Route: 048
     Dates: start: 20091201
  2. NIASPAN [Concomitant]
  3. ASPIRIN [Concomitant]

REACTIONS (1)
  - RESTLESS LEGS SYNDROME [None]
